FAERS Safety Report 5020153-4 (Version None)
Quarter: 2006Q2

REPORT INFORMATION
  Report Type: 
  Country: None (occurrence: None)
  Receive Date: 20060601
  Receipt Date: 20060517
  Transmission Date: 20061013
  Serious: Yes (Other)
  Sender: FDA-Public Use
  Company Number: A-CH2006-12290

PATIENT
  Age: 75 Year
  Sex: Female
  Weight: 62 kg

DRUGS (7)
  1. TRACLEER [Suspect]
     Indication: PULMONARY HYPERTENSION
     Dosage: 62.5 MG BID ORAL
     Route: 048
     Dates: start: 20050518, end: 20050705
  2. DILTIAZEM HYDROCHLORIDE [Concomitant]
  3. ZESTRIL [Concomitant]
  4. SINTROM [Concomitant]
  5. ZOCOR [Concomitant]
  6. LASIX [Concomitant]
  7. OXYGEN [Concomitant]

REACTIONS (2)
  - CHOLECYSTITIS [None]
  - HEPATITIS TOXIC [None]
